FAERS Safety Report 13638267 (Version 6)
Quarter: 2020Q1

REPORT INFORMATION
  Report Type: Spontaneous
  Country: US (occurrence: US)
  Receive Date: 20170609
  Receipt Date: 20200305
  Transmission Date: 20200409
  Serious: No
  Sender: FDA-Public Use
  Company Number: US-PFIZER INC-2017250536

PATIENT
  Age: 59 Year
  Sex: Female

DRUGS (1)
  1. XELJANZ [Suspect]
     Active Substance: TOFACITINIB CITRATE
     Indication: RHEUMATOID ARTHRITIS
     Dosage: 5 MG, 2X/DAY
     Route: 048
     Dates: start: 2014, end: 2019

REACTIONS (10)
  - Bronchitis [Unknown]
  - Peripheral coldness [Unknown]
  - Vomiting [Recovered/Resolved]
  - Limb discomfort [Unknown]
  - Headache [Unknown]
  - Diarrhoea [Recovered/Resolved]
  - Condition aggravated [Recovering/Resolving]
  - Cough [Unknown]
  - Pain in extremity [Unknown]
  - Product dose omission [Unknown]

NARRATIVE: CASE EVENT DATE: 20170820
